FAERS Safety Report 10969472 (Version 1)
Quarter: 2015Q1

REPORT INFORMATION
  Report Type: Report from Study
  Country: BR (occurrence: None)
  Receive Date: 20150327
  Receipt Date: 20150327
  Transmission Date: 20150721
  Serious: Yes (Other)
  Sender: FDA-Public Use
  Company Number: 8017409

PATIENT
  Age: 67 Year
  Sex: Female

DRUGS (3)
  1. ATORVASTATIN [Concomitant]
     Active Substance: ATORVASTATIN
  2. CALTRATE (LEKOVIT CA) (COLECALCIFEROL, CALCIUM CARBONATE) [Concomitant]
  3. EUTHYROX (LEVOTHYROXINE SODIUM) (TABLET) (LEVOTHYROXINE SODIUM) ,170465 [Suspect]
     Active Substance: LEVOTHYROXINE SODIUM
     Indication: PRODUCT USED FOR UNKNOWN INDICATION

REACTIONS (3)
  - Arrhythmia [None]
  - Myocardial infarction [None]
  - Wrong technique in drug usage process [None]

NARRATIVE: CASE EVENT DATE: 201503
